FAERS Safety Report 8267274-0 (Version None)
Quarter: 2012Q2

REPORT INFORMATION
  Report Type: 
  Country: None (occurrence: None)
  Receive Date: 20120409
  Receipt Date: 20120402
  Transmission Date: 20120825
  Serious: Yes (Hospitalization)
  Sender: FDA-Public Use
  Company Number: FR-UCBSA-047603

PATIENT
  Age: 74 Year
  Sex: Female

DRUGS (5)
  1. LACOSAMIDE [Suspect]
     Indication: EPILEPSY
     Dosage: DAILY DOSE: 250 MG
     Route: 048
     Dates: start: 20100324
  2. LAMOTRGINE [Concomitant]
     Dosage: DAILY DOSE: 100 MG
     Route: 048
     Dates: start: 20110910
  3. FLUINDIONE [Concomitant]
     Indication: CARDIAC VALVE PROSTHESIS USER
     Dates: start: 20020101
  4. LEVETIRACETAM [Concomitant]
  5. LAMOTRGINE [Concomitant]
     Indication: EPILEPSY

REACTIONS (1)
  - ATRIAL FLUTTER [None]
